FAERS Safety Report 15169316 (Version 2)
Quarter: 2019Q1

REPORT INFORMATION
  Report Type: Spontaneous
  Country: CZ (occurrence: CZ)
  Receive Date: 20180720
  Receipt Date: 20190222
  Transmission Date: 20190417
  Serious: Yes (Life-Threatening, Hospitalization, Other)
  Sender: FDA-Public Use
  Company Number: CZ-TEVA-2017-CZ-839075

PATIENT
  Age: 51 Year
  Sex: Female

DRUGS (23)
  1. INDOMETACIN [Suspect]
     Active Substance: INDOMETHACIN
     Indication: PAIN
     Route: 048
  2. MIDAZOLAM [Suspect]
     Active Substance: MIDAZOLAM HYDROCHLORIDE
     Indication: MYOCLONUS
     Route: 065
  3. BROMAZEPAM [Concomitant]
     Active Substance: BROMAZEPAM
     Indication: PSYCHIATRIC SYMPTOM
     Dosage: 2 MILLIGRAM DAILY;
     Route: 048
  4. LEVOFLOXACIN. [Suspect]
     Active Substance: LEVOFLOXACIN
     Route: 065
  5. TRAZODONE [Interacting]
     Active Substance: TRAZODONE HYDROCHLORIDE
     Indication: PSYCHIATRIC SYMPTOM
     Route: 048
  6. HYDROXYZINE [Suspect]
     Active Substance: HYDROXYZINE HYDROCHLORIDE
     Route: 065
  7. MIDAZOLAM [Suspect]
     Active Substance: MIDAZOLAM HYDROCHLORIDE
     Indication: SEDATION
  8. METOCLOPRAMIDE. [Suspect]
     Active Substance: METOCLOPRAMIDE
     Route: 065
  9. PIPERACILLIN/TAZOBACTAM [Suspect]
     Active Substance: PIPERACILLIN SODIUM\TAZOBACTAM SODIUM
     Route: 065
  10. ESMOLOL [Suspect]
     Active Substance: ESMOLOL HYDROCHLORIDE
     Route: 065
  11. PAROXETINE. [Interacting]
     Active Substance: PAROXETINE
     Indication: PSYCHIATRIC SYMPTOM
     Dosage: 60 MILLIGRAM DAILY;
     Route: 048
  12. SUFENTANIL [Suspect]
     Active Substance: SUFENTANIL
     Route: 065
  13. VORICONAZOLE. [Suspect]
     Active Substance: VORICONAZOLE
     Route: 065
  14. TRAMADOL. [Suspect]
     Active Substance: TRAMADOL
     Indication: PAIN
     Route: 048
  15. MELOXICAM. [Suspect]
     Active Substance: MELOXICAM
     Indication: PAIN
     Route: 048
  16. CODEINE [Interacting]
     Active Substance: CODEINE
     Indication: PAIN
     Route: 048
  17. ACETAMINOPHEN. [Suspect]
     Active Substance: ACETAMINOPHEN
     Route: 065
  18. CHLORPROTHIXEN [Suspect]
     Active Substance: CHLORPROTHIXENE HYDROCHLORIDE
     Route: 065
  19. CISATRACURIUM. [Suspect]
     Active Substance: CISATRACURIUM
     Dosage: 20 MILLIGRAM DAILY;
     Route: 065
  20. CHLORPROTHIXEN [Concomitant]
     Active Substance: CHLORPROTHIXENE HYDROCHLORIDE
     Indication: PSYCHIATRIC SYMPTOM
     Route: 048
  21. NOREPINEPHRINE. [Suspect]
     Active Substance: NOREPINEPHRINE
     Route: 065
  22. BUDESONIDE /FORMOTEROL [Concomitant]
     Indication: ASTHMA
     Dosage: BUDESONIDE 160 MICROG, FORMOTEROL 4.5 MICROG
     Route: 055
  23. IVABRADINE [Concomitant]
     Active Substance: IVABRADINE
     Indication: SINUS TACHYCARDIA
     Dosage: 10 MILLIGRAM DAILY;
     Route: 048

REACTIONS (3)
  - Drug interaction [Unknown]
  - Depressed level of consciousness [Unknown]
  - Serotonin syndrome [Recovering/Resolving]
